FAERS Safety Report 17299695 (Version 1)
Quarter: 2020Q1

REPORT INFORMATION
  Report Type: Spontaneous
  Country: US (occurrence: US)
  Receive Date: 20200121
  Receipt Date: 20200121
  Transmission Date: 20200409
  Serious: Yes (Disabling)
  Sender: FDA-Public Use
  Company Number: None

PATIENT
  Age: 64 Year
  Sex: Female
  Weight: 60.3 kg

DRUGS (8)
  1. EPCLUSA [Suspect]
     Active Substance: SOFOSBUVIR\VELPATASVIR
     Indication: HEPATITIS C
     Dosage: ?          QUANTITY:1 TABLET(S);?
     Route: 048
     Dates: start: 20191205, end: 20200119
  2. MULTI-VITAMIN [Concomitant]
     Active Substance: .ALPHA.-TOCOPHEROL ACETATE, DL-\ASCORBIC ACID\CYANOCOBALAMIN\FLUORIDE ION\FOLIC ACID\NIACIN\PYRIDOXINE\RIBOFLAVIN\THIAMINE\VITAMIN A\VITAMIN D
  3. OVAR INHALER [Concomitant]
  4. WELLBUTRIN [Concomitant]
     Active Substance: BUPROPION HYDROCHLORIDE
  5. VIT D [Concomitant]
     Active Substance: VITAMIN D NOS
  6. IBUPROFEN. [Concomitant]
     Active Substance: IBUPROFEN
  7. ACETAMINOPHEN. [Concomitant]
     Active Substance: ACETAMINOPHEN
  8. ALUPENT INHALER [Concomitant]

REACTIONS (12)
  - Headache [None]
  - Movement disorder [None]
  - Decreased appetite [None]
  - Depression [None]
  - Anger [None]
  - Dyspnoea [None]
  - Fatigue [None]
  - Mood swings [None]
  - Nausea [None]
  - Pain in extremity [None]
  - Dissociation [None]
  - Insomnia [None]

NARRATIVE: CASE EVENT DATE: 20191212
